FAERS Safety Report 9048960 (Version 1)
Quarter: 2013Q1

REPORT INFORMATION
  Report Type: Spontaneous
  Country: US (occurrence: None)
  Receive Date: 20130116
  Receipt Date: 20130116
  Transmission Date: 20140127
  Serious: Yes (Other)
  Sender: FDA-Public Use
  Company Number: 13-00121

PATIENT
  Age: 63 Year
  Sex: Male
  Weight: 90.72 kg

DRUGS (3)
  1. ASTHMANEFRIN [Suspect]
     Indication: RESPIRATORY DISTRESS
     Dosage: 2-6 PUFFS 054
  2. ASTHMANEFRIN [Suspect]
     Indication: MUCOUS MEMBRANE DISORDER
     Dosage: 2-6 PUFFS 054
  3. COMBIVENT INHALER [Concomitant]

REACTIONS (3)
  - Haemoptysis [None]
  - Treatment noncompliance [None]
  - Incorrect dose administered [None]
